FAERS Safety Report 10415202 (Version 2)
Quarter: 2014Q4

REPORT INFORMATION
  Report Type: Spontaneous
  Country: US (occurrence: US)
  Receive Date: 20140828
  Receipt Date: 20141029
  Transmission Date: 20150528
  Serious: No
  Sender: FDA-Public Use
  Company Number: US-PFIZER INC-2014234247

PATIENT
  Age: 75 Year
  Sex: Female
  Weight: 54.42 kg

DRUGS (3)
  1. XALATAN [Suspect]
     Active Substance: LATANOPROST
     Dosage: 1 GTT, 1X/DAY  (1 DROP TO BOTH EYES ONCE DAILY BEFORE BEDTIME)
     Route: 047
  2. XALATAN [Suspect]
     Active Substance: LATANOPROST
     Indication: GLAUCOMA
     Dosage: 1 GTT, 1X/DAY (1 DROP TO BOTH EYES ONCE DAILY BEFORE BEDTIME)
     Route: 047
     Dates: start: 1995
  3. METOPROLOL [Concomitant]
     Active Substance: METOPROLOL
     Indication: HEART RATE IRREGULAR
     Dosage: UNK

REACTIONS (10)
  - Ocular hyperaemia [Recovered/Resolved]
  - Eye allergy [Unknown]
  - Eye swelling [Recovered/Resolved]
  - Ocular discomfort [Unknown]
  - Lacrimation increased [Recovered/Resolved]
  - Eye pruritus [Unknown]
  - Eye irritation [Unknown]
  - Product formulation issue [Unknown]
  - Eyelid margin crusting [Unknown]
  - Eyelid oedema [Recovered/Resolved]

NARRATIVE: CASE EVENT DATE: 20140817
